FAERS Safety Report 19694303 (Version 1)
Quarter: 2021Q3

REPORT INFORMATION
  Report Type: Spontaneous
  Country: GB (occurrence: GB)
  Receive Date: 20210812
  Receipt Date: 20210812
  Transmission Date: 20211014
  Serious: Yes (Hospitalization)
  Sender: FDA-Public Use
  Company Number: NVSC2021GB173890

PATIENT
  Sex: Male

DRUGS (1)
  1. ADALIMUMAB [Suspect]
     Active Substance: ADALIMUMAB
     Indication: PRODUCT USED FOR UNKNOWN INDICATION
     Dosage: 40 MG, BIW
     Route: 058

REACTIONS (3)
  - Ileal stenosis [Recovered/Resolved]
  - Urinary tract infection [Recovered/Resolved]
  - Procedural nausea [Recovered/Resolved]

NARRATIVE: CASE EVENT DATE: 202105
